FAERS Safety Report 7700816-X (Version None)
Quarter: 2011Q3

REPORT INFORMATION
  Report Type: 
  Country: None (occurrence: None)
  Receive Date: 20110822
  Receipt Date: 20110816
  Transmission Date: 20111222
  Serious: Yes (Hospitalization)
  Sender: FDA-Public Use
  Company Number: US-B.I. PHARMACEUTICALS,INC./RIDGEFIELD-2011-BP-20122BP

PATIENT
  Age: 28 Year
  Sex: Female

DRUGS (3)
  1. AZT [Concomitant]
     Indication: HIV INFECTION
  2. 37Z [Concomitant]
     Indication: HIV INFECTION
  3. VIRAMUNE [Suspect]
     Indication: HIV INFECTION
     Route: 048

REACTIONS (1)
  - VANISHING BILE DUCT SYNDROME [None]
